FAERS Safety Report 9227678 (Version 1)
Quarter: 2013Q2

REPORT INFORMATION
  Report Type: Spontaneous
  Country: US (occurrence: None)
  Receive Date: 20130412
  Receipt Date: 20130412
  Transmission Date: 20140414
  Serious: Yes (Hospitalization)
  Sender: FDA-Public Use
  Company Number: None

PATIENT
  Age: 77 Year
  Sex: Male
  Weight: 76.8 kg

DRUGS (22)
  1. AVASTIN [Suspect]
  2. ASPIRIN [Concomitant]
  3. COREG [Concomitant]
  4. ENSURE [Concomitant]
  5. GLIPIZIDE [Concomitant]
  6. LASIX [Concomitant]
  7. LEVOTHYROXINE SODIUM [Concomitant]
  8. LEXAPRO [Concomitant]
  9. LIPITOR [Concomitant]
  10. LISINOPRIL [Concomitant]
  11. LOFIBRA [Concomitant]
  12. METFORMIN HCL [Concomitant]
  13. METOLAZONE [Suspect]
  14. MULTIVITAMINS [Concomitant]
  15. NORVASC [Concomitant]
  16. PLAVIX [Concomitant]
  17. ROCALTROL [Concomitant]
  18. TRICOR [Concomitant]
  19. VITAMIN D [Concomitant]
  20. ZAROXOLYN [Concomitant]
  21. OXYCODONE HCL [Concomitant]
  22. OXYCONTIN [Concomitant]

REACTIONS (9)
  - Influenza [None]
  - Headache [None]
  - Nasal congestion [None]
  - Oropharyngeal pain [None]
  - Productive cough [None]
  - Dyspnoea [None]
  - Hypoxia [None]
  - Condition aggravated [None]
  - Bronchitis viral [None]
